FAERS Safety Report 6463770-7 (Version None)
Quarter: 2009Q4

REPORT INFORMATION
  Report Type: 
  Country: None (occurrence: None)
  Receive Date: 20091201
  Receipt Date: 20091120
  Transmission Date: 20100525
  Serious: No
  Sender: FDA-Public Use
  Company Number: US-JNJFOC-20091106808

PATIENT
  Sex: Female
  Weight: 54.43 kg

DRUGS (2)
  1. DURAGESIC-100 [Suspect]
     Indication: BACK PAIN
     Dosage: NDC# 50458-0094-05
     Route: 062
     Dates: start: 20091001
  2. NEURONTIN [Concomitant]
     Indication: NEURALGIA

REACTIONS (7)
  - APPLICATION SITE PRURITUS [None]
  - APPLICATION SITE REACTION [None]
  - PAIN [None]
  - PRODUCT ADHESION ISSUE [None]
  - PRODUCT QUALITY ISSUE [None]
  - SKIN TIGHTNESS [None]
  - WRONG TECHNIQUE IN DRUG USAGE PROCESS [None]
